FAERS Safety Report 8541133-8 (Version None)
Quarter: 2012Q3

REPORT INFORMATION
  Report Type: 
  Country: None (occurrence: None)
  Receive Date: 20120726
  Receipt Date: 20110819
  Transmission Date: 20120928
  Serious: No
  Sender: FDA-Public Use
  Company Number: US-ASTRAZENECA-2011SE50178

PATIENT
  Age: 68 Year
  Sex: Female
  Weight: 56.7 kg

DRUGS (5)
  1. SEROQUEL [Suspect]
     Indication: BIPOLAR DISORDER
     Route: 048
     Dates: start: 20090101
  2. LITHIUM CARBONATE [Concomitant]
     Indication: BIPOLAR DISORDER
  3. CLONAZEPAM [Concomitant]
     Indication: ANXIETY
  4. LEVOTHROID [Concomitant]
     Indication: HYPOTHYROIDISM
  5. LANOTRIGINE [Concomitant]
     Indication: MOOD SWINGS

REACTIONS (6)
  - OFF LABEL USE [None]
  - DRUG DOSE OMISSION [None]
  - HYPOMANIA [None]
  - ANXIETY [None]
  - MANIA [None]
  - FEELING HOT [None]
